FAERS Safety Report 10884709 (Version 1)
Quarter: 2015Q1

REPORT INFORMATION
  Report Type: Spontaneous
  Country: JP (occurrence: JP)
  Receive Date: 20150304
  Receipt Date: 20150304
  Transmission Date: 20150721
  Serious: Yes (Death)
  Sender: FDA-Public Use
  Company Number: JP-MALLINCKRODT-T201501409

PATIENT
  Age: 50 Year
  Sex: Female

DRUGS (14)
  1. RINDERON V [Concomitant]
     Active Substance: BETAMETHASONE VALERATE
     Dosage: 2 MG
     Route: 051
  2. METHADONE [Suspect]
     Active Substance: METHADONE HYDROCHLORIDE
     Indication: CANCER PAIN
     Dosage: 5 MG (15 MG DAILY DOSE)
     Route: 048
     Dates: start: 20150117, end: 20150126
  3. LYRICA [Concomitant]
     Active Substance: PREGABALIN
     Dosage: 75 MG
     Route: 048
     Dates: start: 20141127
  4. OMEPRAZOLE. [Concomitant]
     Active Substance: OMEPRAZOLE
     Dosage: 40 MG
     Route: 051
  5. MIDAZOLAM [Concomitant]
     Active Substance: MIDAZOLAM\MIDAZOLAM HYDROCHLORIDE
     Dosage: 10 MG
     Route: 051
     Dates: start: 20150126, end: 20150128
  6. OXYFAST [Concomitant]
     Active Substance: OXYCODONE
     Dosage: 150 MG
     Route: 051
     Dates: start: 20150126, end: 20150128
  7. OXYFAST [Concomitant]
     Active Substance: OXYCODONE
     Dosage: 7.5 MG PRN
     Route: 051
     Dates: start: 20140116
  8. REMERON [Concomitant]
     Active Substance: MIRTAZAPINE
     Dosage: 7.5 MG
     Route: 048
     Dates: start: 20150111
  9. OXYFAST [Concomitant]
     Active Substance: OXYCODONE
     Dosage: 90 MG
     Route: 051
     Dates: start: 20150120, end: 20150122
  10. MAGMITT [Concomitant]
     Active Substance: MAGNESIUM OXIDE
     Dosage: 990 MG
     Route: 048
  11. OXYFAST [Concomitant]
     Active Substance: OXYCODONE
     Dosage: 90 MG
     Route: 051
     Dates: end: 20150119
  12. OXYFAST [Concomitant]
     Active Substance: OXYCODONE
     Dosage: 67.5 MG
     Route: 051
     Dates: start: 20150119, end: 20150120
  13. OXYFAST [Concomitant]
     Active Substance: OXYCODONE
     Dosage: 100 MG
     Route: 051
     Dates: start: 20150122, end: 20150123
  14. OXYFAST [Concomitant]
     Active Substance: OXYCODONE
     Dosage: 125 MG
     Route: 051
     Dates: start: 20150123, end: 20150126

REACTIONS (1)
  - Gastric cancer [Fatal]
